FAERS Safety Report 23454531 (Version 2)
Quarter: 2024Q1

REPORT INFORMATION
  Report Type: Spontaneous
  Country: JP (occurrence: JP)
  Receive Date: 20240130
  Receipt Date: 20240213
  Transmission Date: 20240410
  Serious: Yes (Hospitalization)
  Sender: FDA-Public Use
  Company Number: JP-TAKEDA-2024TJP001522

PATIENT
  Age: 22 Year
  Sex: Female

DRUGS (2)
  1. INTUNIV [Suspect]
     Active Substance: GUANFACINE HYDROCHLORIDE
     Indication: Attention deficit hyperactivity disorder
     Dosage: UNK
     Route: 048
     Dates: start: 20220411
  2. INTUNIV [Suspect]
     Active Substance: GUANFACINE HYDROCHLORIDE
     Dosage: 2 MILLIGRAM, QD
     Route: 048
     Dates: start: 20230116, end: 20230214

REACTIONS (2)
  - Premature rupture of membranes [Unknown]
  - Pregnancy [Unknown]

NARRATIVE: CASE EVENT DATE: 20231006
